FAERS Safety Report 8849174 (Version 4)
Quarter: 2013Q1

REPORT INFORMATION
  Report Type: Spontaneous
  Country: GB (occurrence: GB)
  Receive Date: 20121019
  Receipt Date: 20130111
  Transmission Date: 20140127
  Serious: Yes (Other)
  Sender: FDA-Public Use
  Company Number: PHFR2012GB004782

PATIENT
  Age: 49 Year
  Sex: Female

DRUGS (4)
  1. CLOZARIL [Suspect]
     Indication: SCHIZOPHRENIA
     Dosage: 500 MG, DAILY
     Route: 048
     Dates: start: 20120711, end: 20120830
  2. RISPERIDONE [Concomitant]
     Dosage: 6 MG
  3. QUETIAPINE [Concomitant]
     Indication: PSYCHOTIC DISORDER
     Dosage: 400 MG, UNK
     Route: 048
  4. QUETIAPINE [Concomitant]
     Dosage: 300 MG, UNK
     Dates: start: 20120718

REACTIONS (9)
  - Anosognosia [Unknown]
  - Impaired self-care [Unknown]
  - Persecutory delusion [Unknown]
  - Anxiety [Unknown]
  - Hallucination, auditory [Unknown]
  - Agitation [Unknown]
  - Neutropenia [Recovered/Resolved]
  - Neutrophil count decreased [Recovered/Resolved]
  - White blood cell count decreased [Recovered/Resolved]
